FAERS Safety Report 5262819-7 (Version None)
Quarter: 2007Q1

REPORT INFORMATION
  Report Type: 
  Country: None (occurrence: None)
  Receive Date: 20070312
  Receipt Date: 20070301
  Transmission Date: 20070707
  Serious: Yes (Other)
  Sender: FDA-Public Use
  Company Number: US-ROCHE-484866

PATIENT
  Age: 57 Year
  Sex: Female

DRUGS (4)
  1. BONIVA [Suspect]
     Indication: DRUG USE FOR UNKNOWN INDICATION
     Route: 065
     Dates: start: 20070223
  2. TOPROL-XL [Concomitant]
  3. NEURONTIN [Concomitant]
  4. LUNESTA [Concomitant]
     Indication: SOMNOLENCE
     Dosage: REPORTED AS 1/2 PILL AT BEDTIME

REACTIONS (4)
  - ABDOMINAL DISTENSION [None]
  - DIARRHOEA [None]
  - MYALGIA [None]
  - VENTRICULAR EXTRASYSTOLES [None]
